FAERS Safety Report 20329450 (Version 1)
Quarter: 2022Q1

REPORT INFORMATION
  Report Type: Other
  Country: US (occurrence: None)
  Receive Date: 20220112
  Receipt Date: 20220112
  Transmission Date: 20220423
  Serious: Yes (Hospitalization, Other)
  Sender: FDA-Public Use
  Company Number: US-DEXPHARM-20212308

PATIENT
  Age: 68 Year
  Sex: Male

DRUGS (11)
  1. METHYLPREDNISOLONE [Suspect]
     Active Substance: METHYLPREDNISOLONE
  2. COLCHICINE [Concomitant]
     Active Substance: COLCHICINE
  3. AMOXICILLIN\CLAVULANIC ACID [Suspect]
     Active Substance: AMOXICILLIN\CLAVULANIC ACID
  4. COTRIMOXAZOLE [Suspect]
     Active Substance: SULFAMETHOXAZOLE\TRIMETHOPRIM
  5. LORAZEPAM [Concomitant]
     Active Substance: LORAZEPAM
  6. OXYCODONE [Concomitant]
     Active Substance: OXYCODONE
  7. DEXAMETHASONE [Suspect]
     Active Substance: DEXAMETHASONE
  8. CYCLOBENZAPRINE [Suspect]
     Active Substance: CYCLOBENZAPRINE
  9. ACYCLOVIR [Suspect]
     Active Substance: ACYCLOVIR
  10. PREDNISONE [Concomitant]
     Active Substance: PREDNISONE
  11. IMATINIB [Concomitant]
     Active Substance: IMATINIB

REACTIONS (1)
  - Mouth ulceration [Recovered/Resolved]
